FAERS Safety Report 16946897 (Version 8)
Quarter: 2025Q3

REPORT INFORMATION
  Report Type: Spontaneous
  Country: JP (occurrence: JP)
  Receive Date: 20191022
  Receipt Date: 20250716
  Transmission Date: 20251020
  Serious: Yes (Death, Life-Threatening, Hospitalization, Other)
  Sender: BRISTOL-MYERS SQUIBB COMPANY
  Company Number: JP-BRISTOL-MYERS SQUIBB COMPANY-BMS-2019-101223

PATIENT
  Age: 77 Year
  Sex: Female
  Weight: 36 kg

DRUGS (3)
  1. OPDIVO [Suspect]
     Active Substance: NIVOLUMAB
     Indication: Non-small cell lung cancer
     Dosage: 240 MILLIGRAM 2 MG/KG Q2WK
     Route: 041
     Dates: start: 20190919, end: 20191003
  2. OPDIVO [Suspect]
     Active Substance: NIVOLUMAB
     Indication: Non-small cell lung cancer recurrent
  3. CODEINE PHOSPHATE [Concomitant]
     Active Substance: CODEINE PHOSPHATE
     Indication: Product used for unknown indication
     Dosage: 60 MILLIGRAM, Q8H
     Route: 048
     Dates: start: 20190919, end: 20191007

REACTIONS (3)
  - Immune-mediated myositis [Fatal]
  - Myasthenic syndrome [Fatal]
  - Immune-mediated myocarditis [Fatal]

NARRATIVE: CASE EVENT DATE: 20191004
